FAERS Safety Report 10085943 (Version 2)
Quarter: 2014Q2

REPORT INFORMATION
  Report Type: Spontaneous
  Country: US (occurrence: US)
  Receive Date: 20140418
  Receipt Date: 20140506
  Transmission Date: 20141212
  Serious: Yes (Other)
  Sender: FDA-Public Use
  Company Number: PHEH2014US007258

PATIENT
  Age: 55 Year
  Sex: Female

DRUGS (8)
  1. GILENYA [Suspect]
     Indication: MULTIPLE SCLEROSIS
     Route: 048
     Dates: start: 2012
  2. KLONOPIN [Concomitant]
     Dosage: 0.5 MG Q6H, PRN
     Route: 048
  3. TRAMADOL HCL [Concomitant]
     Dosage: 1 DF, PRN
     Route: 048
  4. FLONASE [Concomitant]
  5. ADVIL//IBUPROFEN [Concomitant]
     Dosage: 200 MG, PRN
  6. IMITREX ^CERENEX^ [Concomitant]
     Indication: MIGRAINE
     Dosage: 100 MG, PRN
     Route: 048
  7. SYNTHROID [Concomitant]
     Dosage: 150 UG, QD
     Route: 048
  8. VIT D3 [Suspect]
     Dosage: 2 DF, QD
     Route: 048

REACTIONS (7)
  - Pneumonia cryptococcal [Unknown]
  - Abdominal pain [Recovered/Resolved]
  - Pyrexia [Unknown]
  - Tic [Unknown]
  - Hepatic function abnormal [Unknown]
  - White blood cell count decreased [Unknown]
  - Lymphocyte count decreased [Unknown]
